FAERS Safety Report 18378569 (Version 1)
Quarter: 2020Q4

REPORT INFORMATION
  Report Type: Spontaneous
  Country: US (occurrence: US)
  Receive Date: 20201013
  Receipt Date: 20201013
  Transmission Date: 20210114
  Serious: Yes (Other)
  Sender: FDA-Public Use
  Company Number: US-MEDEXUS PHARMA, INC.-2020MED00288

PATIENT
  Sex: Female
  Weight: 89.34 kg

DRUGS (5)
  1. ELAVIL [Concomitant]
     Active Substance: AMITRIPTYLINE HYDROCHLORIDE
  2. RINVOQ [Concomitant]
     Active Substance: UPADACITINIB
  3. RASUVO [Suspect]
     Active Substance: METHOTREXATE SODIUM
     Indication: RHEUMATOID ARTHRITIS
     Dosage: 25 MG, 1X/WEEK INJECTED ON TUESDAY OR WEDNESDAY IN STOMACH
     Dates: start: 2019, end: 20200527
  4. RASUVO [Suspect]
     Active Substance: METHOTREXATE SODIUM
     Dosage: 25 MG, 1X/WEEK INJECTED ON TUESDAY OR WEDNESDAY IN STOMACH
     Dates: start: 202009
  5. NEXIUM [Concomitant]
     Active Substance: ESOMEPRAZOLE MAGNESIUM

REACTIONS (9)
  - Sinus disorder [Recovering/Resolving]
  - Rib fracture [Recovering/Resolving]
  - Musculoskeletal disorder [Recovering/Resolving]
  - COVID-19 pneumonia [Recovering/Resolving]
  - Pelvic fracture [Recovering/Resolving]
  - Bronchitis [Recovering/Resolving]
  - Groin pain [Recovering/Resolving]
  - Product dose omission issue [Recovering/Resolving]
  - Illness [Recovering/Resolving]

NARRATIVE: CASE EVENT DATE: 2020
